FAERS Safety Report 16662228 (Version 1)
Quarter: 2019Q3

REPORT INFORMATION
  Report Type: Spontaneous
  Country: US (occurrence: US)
  Receive Date: 20190802
  Receipt Date: 20190802
  Transmission Date: 20191004
  Serious: Yes (Disabling)
  Sender: FDA-Public Use
  Company Number: None

PATIENT
  Age: 72 Year
  Sex: Male
  Weight: 98.1 kg

DRUGS (12)
  1. ROSUVASTATIN. [Concomitant]
     Active Substance: ROSUVASTATIN
  2. LOSARTAN. [Concomitant]
     Active Substance: LOSARTAN
  3. REPAGLINIDE. [Concomitant]
     Active Substance: REPAGLINIDE
  4. PIOGLITAZONE. [Concomitant]
     Active Substance: PIOGLITAZONE
  5. TIGARELOR [Concomitant]
  6. MULTIVITAMIN [Concomitant]
     Active Substance: VITAMINS
  7. METOPROLOL. [Concomitant]
     Active Substance: METOPROLOL
  8. LEVOFLOXACIN. [Suspect]
     Active Substance: LEVOFLOXACIN
     Indication: BRONCHITIS
     Dosage: ?          QUANTITY:1 TABLET(S);?
     Route: 048
     Dates: start: 20190623, end: 20190703
  9. TRULICITY [Concomitant]
     Active Substance: DULAGLUTIDE
  10. FARXIGA [Concomitant]
     Active Substance: DAPAGLIFLOZIN PROPANEDIOL
  11. EZETIMIBE. [Concomitant]
     Active Substance: EZETIMIBE
  12. METFORMIN [Concomitant]
     Active Substance: METFORMIN HYDROCHLORIDE

REACTIONS (4)
  - Tendon injury [None]
  - Tendon pain [None]
  - Muscle injury [None]
  - Myalgia [None]

NARRATIVE: CASE EVENT DATE: 20190626
